FAERS Safety Report 23737820 (Version 1)
Quarter: 2024Q2

REPORT INFORMATION
  Report Type: Spontaneous
  Country: JP (occurrence: JP)
  Receive Date: 20240412
  Receipt Date: 20240412
  Transmission Date: 20240716
  Serious: Yes (Other)
  Sender: FDA-Public Use
  Company Number: JP-PFIZER INC-202400082488

PATIENT
  Sex: Male

DRUGS (3)
  1. OXALIPLATIN [Suspect]
     Active Substance: OXALIPLATIN
     Indication: Colorectal cancer
     Dosage: UNK
  2. TS-1 [Concomitant]
     Active Substance: GIMERACIL\OTERACIL POTASSIUM\TEGAFUR
     Indication: Colorectal cancer
     Dosage: UNK
  3. BEVACIZUMAB [Concomitant]
     Active Substance: BEVACIZUMAB
     Indication: Colorectal cancer
     Dosage: UNK

REACTIONS (1)
  - Neuropathy peripheral [Unknown]
